FAERS Safety Report 10550986 (Version 1)
Quarter: 2014Q4

REPORT INFORMATION
  Report Type: Spontaneous
  Country: CA (occurrence: None)
  Receive Date: 20141027
  Receipt Date: 20141027
  Transmission Date: 20150529
  Serious: Yes (Hospitalization)
  Sender: FDA-Public Use
  Company Number: CA-017453

PATIENT
  Age: 66 Year
  Sex: Male

DRUGS (11)
  1. TAMSULOSIN [Concomitant]
     Active Substance: TAMSULOSIN
  2. BISOPROLOL [Concomitant]
     Active Substance: BISOPROLOL
  3. NITROGLYCERIN. [Concomitant]
     Active Substance: NITROGLYCERIN
  4. FIRMAGON [Suspect]
     Active Substance: DEGARELIX ACETATE
     Indication: PROSTATE CANCER
     Route: 058
     Dates: start: 20131026
  5. AVODART [Concomitant]
     Active Substance: DUTASTERIDE
  6. RAMIPRIL. [Concomitant]
     Active Substance: RAMIPRIL
  7. MYRBETRIQ [Concomitant]
     Active Substance: MIRABEGRON
  8. ROSUVASTATIN [Concomitant]
     Active Substance: ROSUVASTATIN
  9. ACETYLSALICYLIC ACID [Concomitant]
     Active Substance: ASPIRIN
  10. SERTRALINE [Concomitant]
     Active Substance: SERTRALINE HYDROCHLORIDE
  11. ALLOPURINOL. [Concomitant]
     Active Substance: ALLOPURINOL

REACTIONS (3)
  - General physical condition abnormal [None]
  - Transfusion [None]
  - Pain [None]

NARRATIVE: CASE EVENT DATE: 20141014
